FAERS Safety Report 4412086-9 (Version None)
Quarter: 2004Q2

REPORT INFORMATION
  Report Type: 
  Country: None (occurrence: None)
  Receive Date: 20040630
  Receipt Date: 20040323
  Transmission Date: 20050107
  Serious: No
  Sender: FDA-Public Use
  Company Number: 04P-163-0254365-00

PATIENT
  Age: 59 Year
  Sex: Female
  Weight: 77.1115 kg

DRUGS (8)
  1. HUMIRA [Suspect]
     Indication: RHEUMATOID ARTHRITIS
     Dosage: 40MG, 1 IN 2 WK, SUBCUTANEOUS
     Route: 058
     Dates: start: 20040316
  2. VICODIN [Concomitant]
  3. HYDROXYCHLOROQUINE PHOSPHATE [Concomitant]
  4. DOCUSATE SODIUM [Concomitant]
  5. LANSOPRAZOLE [Concomitant]
  6. AMITRIPTYLINE HYDROCHLORIDE [Concomitant]
  7. DYAZIDE [Concomitant]
  8. ROFECOXIB [Concomitant]

REACTIONS (2)
  - DYSGEUSIA [None]
  - GINGIVAL BLEEDING [None]
